FAERS Safety Report 9265790 (Version 1)
Quarter: 2013Q2

REPORT INFORMATION
  Report Type: Spontaneous
  Country: NL (occurrence: NL)
  Receive Date: 20130501
  Receipt Date: 20130501
  Transmission Date: 20140414
  Serious: Yes (Hospitalization)
  Sender: FDA-Public Use
  Company Number: NL-TEVA-400122ISR

PATIENT
  Age: 54 Year
  Sex: Male
  Weight: 104 kg

DRUGS (4)
  1. BLEOMYCINE INJECTIEPOEDER 15IE [Suspect]
     Indication: HODGKIN^S DISEASE
     Dosage: 3 ABVD COURSES
     Route: 042
     Dates: start: 20130118, end: 20130408
  2. ADRIBLASTINA INJECTIEPOEDER FLAC 10MG +SOLV 5ML - NON-CURRENT DRUG [Concomitant]
     Dosage: HODGKIN SCHEME
     Route: 042
     Dates: start: 20130118
  3. VINBLASTINE INJVLST 1MG/ML [Concomitant]
     Dosage: HODGKIN SCHEMA
     Route: 042
     Dates: start: 20120118
  4. DACARBAZINE INFUSIEPOEDER  500MG [Concomitant]
     Dosage: HODGKIN SCHEME
     Route: 042
     Dates: start: 20130118

REACTIONS (1)
  - Organising pneumonia [Recovering/Resolving]
